FAERS Safety Report 4747765-7 (Version None)
Quarter: 2005Q3

REPORT INFORMATION
  Report Type: 
  Country: None (occurrence: None)
  Receive Date: 20050816
  Receipt Date: 20050802
  Transmission Date: 20060218
  Serious: Yes (Hospitalization)
  Sender: FDA-Public Use
  Company Number: 216663

PATIENT
  Age: 68 Year
  Sex: Female

DRUGS (2)
  1. RAPTIVA [Suspect]
     Indication: PSORIASIS
     Dates: start: 20050705
  2. SYNTHROID [Concomitant]

REACTIONS (5)
  - ANGIOGRAM ABNORMAL [None]
  - DIPLOPIA [None]
  - EYELID PTOSIS [None]
  - HYPOTHYROIDISM [None]
  - NEURITIS [None]
